FAERS Safety Report 17123273 (Version 1)
Quarter: 2019Q4

REPORT INFORMATION
  Report Type: Spontaneous
  Country: FR (occurrence: FR)
  Receive Date: 20191206
  Receipt Date: 20191206
  Transmission Date: 20200122
  Serious: Yes (Other)
  Sender: FDA-Public Use
  Company Number: FR-UCBSA-2019052132

PATIENT
  Sex: Male

DRUGS (2)
  1. VIMPAT [Suspect]
     Active Substance: LACOSAMIDE
     Indication: EPILEPSY
     Dosage: 200 MILLIGRAM
  2. VIMPAT [Suspect]
     Active Substance: LACOSAMIDE
     Dosage: 400 MILLIGRAM

REACTIONS (5)
  - Mania [Unknown]
  - Social avoidant behaviour [Unknown]
  - Anxiety [Unknown]
  - Seizure [Unknown]
  - Off label use [Unknown]
